FAERS Safety Report 4958974-6 (Version None)
Quarter: 2006Q1

REPORT INFORMATION
  Report Type: 
  Country: None (occurrence: None)
  Receive Date: 20060328
  Receipt Date: 20060316
  Transmission Date: 20060701
  Serious: Yes (Other)
  Sender: FDA-Public Use
  Company Number: 2006-02-0539

PATIENT
  Age: 51 Year
  Sex: Female
  Weight: 74.3899 kg

DRUGS (7)
  1. COPEGUS [Suspect]
     Indication: HEPATITIS C
     Dosage: 1000-800MG*QD
     Dates: start: 20041205
  2. PEGASYS [Suspect]
     Indication: HEPATITIS C
     Dosage: 180 UG QW
     Dates: start: 20041205, end: 20050813
  3. INFERGEN [Suspect]
     Indication: HEPATITIS C
     Dosage: 15 UG QD
     Dates: start: 20050813
  4. NEUPOGEN [Concomitant]
  5. PROPRANOLOL [Concomitant]
  6. ZOLOFT [Concomitant]
  7. SYNTHROID [Concomitant]

REACTIONS (3)
  - ANAEMIA [None]
  - APLASIA PURE RED CELL [None]
  - DRUG INEFFECTIVE [None]
